FAERS Safety Report 23724246 (Version 3)
Quarter: 2024Q3

REPORT INFORMATION
  Report Type: Spontaneous
  Country: US (occurrence: US)
  Receive Date: 20240409
  Receipt Date: 20240819
  Transmission Date: 20241017
  Serious: No
  Sender: KARYOPHARM THERAPEUTICS
  Company Number: US-KARYOPHARM-2024KPT000881

PATIENT

DRUGS (28)
  1. XPOVIO [Suspect]
     Active Substance: SELINEXOR
     Indication: Plasma cell myeloma
     Dosage: 100 MG, WEEKLY
     Route: 048
     Dates: start: 20240209, end: 2024
  2. XPOVIO [Suspect]
     Active Substance: SELINEXOR
     Dosage: 70 MG
     Dates: start: 2024
  3. SPIRONOLACTONE [Concomitant]
     Active Substance: SPIRONOLACTONE
  4. LAMISIL [Concomitant]
     Active Substance: TERBINAFINE HYDROCHLORIDE
  5. TRAMADOL [Concomitant]
     Active Substance: TRAMADOL\TRAMADOL HYDROCHLORIDE
  6. HYDROCHLOROTHIAZIDE\VALSARTAN [Concomitant]
     Active Substance: HYDROCHLOROTHIAZIDE\VALSARTAN
  7. HYDROCHLOROTHIAZIDE\TRIAMTERENE [Concomitant]
     Active Substance: HYDROCHLOROTHIAZIDE\TRIAMTERENE
  8. ALBUTEROL SULFATE [Concomitant]
     Active Substance: ALBUTEROL SULFATE
  9. ATENOLOL [Concomitant]
     Active Substance: ATENOLOL
  10. ATORVASTATIN [Concomitant]
     Active Substance: ATORVASTATIN
  11. ATROVENT HFA [Concomitant]
     Active Substance: IPRATROPIUM BROMIDE
  12. DEXAMETHASONE [Concomitant]
     Active Substance: DEXAMETHASONE
  13. FUROSEMIDE [Concomitant]
     Active Substance: FUROSEMIDE
  14. GABAPENTIN [Concomitant]
     Active Substance: GABAPENTIN
  15. HYDROCHLOROTHIAZIDE [Concomitant]
     Active Substance: HYDROCHLOROTHIAZIDE
  16. HYDROCORTISONE [Concomitant]
     Active Substance: HYDROCORTISONE\HYDROCORTISONE ACETATE
  17. LATANOPROST [Concomitant]
     Active Substance: LATANOPROST
  18. LOSARTAN [Concomitant]
     Active Substance: LOSARTAN\LOSARTAN POTASSIUM
  19. METRONIDAZOLE [Concomitant]
     Active Substance: METRONIDAZOLE
  20. MIRTAZAPINE [Concomitant]
     Active Substance: MIRTAZAPINE
  21. NITROLINGUAL [Concomitant]
     Active Substance: NITROGLYCERIN
  22. OCUFLOX [Concomitant]
     Active Substance: OFLOXACIN
  23. PREDNISONE [Concomitant]
     Active Substance: PREDNISONE
  24. ROSUVASTATIN [Concomitant]
     Active Substance: ROSUVASTATIN\ROSUVASTATIN CALCIUM
  25. TRELEGY ELLIPTA [Concomitant]
     Active Substance: FLUTICASONE FUROATE\UMECLIDINIUM BROMIDE\VILANTEROL TRIFENATATE
  26. ZOFRAN [Concomitant]
     Active Substance: ONDANSETRON HYDROCHLORIDE
  27. ASPIRIN [Concomitant]
     Active Substance: ASPIRIN
  28. POTASSIUM CHLORIDE [Concomitant]
     Active Substance: POTASSIUM CHLORIDE

REACTIONS (4)
  - Pneumonia [Recovering/Resolving]
  - Nausea [Not Recovered/Not Resolved]
  - Dyspnoea [Unknown]
  - Constipation [Unknown]

NARRATIVE: CASE EVENT DATE: 20240101
